FAERS Safety Report 12907498 (Version 3)
Quarter: 2016Q4

REPORT INFORMATION
  Report Type: Spontaneous
  Country: CZ (occurrence: CZ)
  Receive Date: 20161103
  Receipt Date: 20161124
  Transmission Date: 20170207
  Serious: Yes (Hospitalization, Other)
  Sender: FDA-Public Use
  Company Number: CZ-CELGENEUS-CZE-2016105669

PATIENT
  Age: 73 Year
  Sex: Female

DRUGS (10)
  1. BETADINE [Concomitant]
     Active Substance: POVIDONE-IODINE
     Indication: SKIN INFECTION
     Route: 061
     Dates: start: 20160305, end: 20160320
  2. CIPLOX [Concomitant]
     Active Substance: CIPROFLOXACIN HYDROCHLORIDE
     Indication: SKIN INFECTION
     Route: 048
     Dates: start: 20160202, end: 20160212
  3. LETROX [Concomitant]
     Active Substance: LEVOTHYROXINE SODIUM
     Indication: HYPOTHYROIDISM
     Route: 048
  4. BISEPTOL [Concomitant]
     Active Substance: SULFAMETHOXAZOLE\TRIMETHOPRIM
     Indication: INFECTION PROPHYLAXIS
     Route: 048
  5. VIDAZA [Suspect]
     Active Substance: AZACITIDINE
     Indication: CHRONIC MYELOID LEUKAEMIA
     Route: 058
     Dates: start: 20160201, end: 20160715
  6. IBALGIN [Concomitant]
     Active Substance: IBUPROFEN
     Indication: ARTHRALGIA
     Route: 048
     Dates: start: 20160114, end: 20160303
  7. TRAMAL [Concomitant]
     Active Substance: TRAMADOL
     Indication: ARTHRALGIA
     Route: 048
     Dates: start: 20160201, end: 20161007
  8. HELICID [Concomitant]
     Indication: PROPHYLAXIS
     Route: 048
  9. PROPRANOLOL [Concomitant]
     Active Substance: PROPRANOLOL\PROPRANOLOL HYDROCHLORIDE
     Indication: ARRHYTHMIA SUPRAVENTRICULAR
     Dosage: 1-0-0
     Route: 048
  10. SECTRAL [Concomitant]
     Active Substance: ACEBUTOLOL HYDROCHLORIDE
     Indication: HYPERTENSION
     Dosage: 1/2-0-1/2
     Route: 048

REACTIONS (18)
  - Anaemia [Unknown]
  - Chronic myeloid leukaemia [Unknown]
  - Injection site erythema [Unknown]
  - Sinusitis [Unknown]
  - Joint effusion [Recovered/Resolved]
  - Dyspnoea [Unknown]
  - Hepatosplenomegaly [Not Recovered/Not Resolved]
  - Pyrexia [Unknown]
  - Fatigue [Not Recovered/Not Resolved]
  - Urinary tract infection [Unknown]
  - Leukocytosis [Unknown]
  - Vomiting [Unknown]
  - Decubitus ulcer [Unknown]
  - Purulent discharge [Unknown]
  - Diarrhoea [Unknown]
  - Thrombocytopenia [Unknown]
  - Nausea [Unknown]
  - Constipation [Unknown]
